FAERS Safety Report 4370034-4 (Version None)
Quarter: 2004Q2

REPORT INFORMATION
  Report Type: 
  Country: None (occurrence: None)
  Receive Date: 20040525
  Receipt Date: 20040511
  Transmission Date: 20050107
  Serious: Yes (Death)
  Sender: FDA-Public Use
  Company Number: RENA-10947

PATIENT
  Age: 58 Year
  Sex: Male

DRUGS (7)
  1. BEZAFIBRATE [Suspect]
     Indication: HYPERCHOLESTEROLAEMIA
     Dates: start: 20030701, end: 20030701
  2. RENAGEL [Suspect]
     Indication: HYPERPHOSPHATAEMIA
  3. ALFACALCIDOL [Concomitant]
  4. THYROXINE [Concomitant]
  5. EPOETIN  ALFA [Concomitant]
  6. RENAGEL [Concomitant]
  7. QUININE [Concomitant]

REACTIONS (2)
  - PULMONARY FIBROSIS [None]
  - RHABDOMYOLYSIS [None]
